FAERS Safety Report 4475918-4 (Version None)
Quarter: 2004Q4

REPORT INFORMATION
  Report Type: 
  Country: None (occurrence: None)
  Receive Date: 20041012
  Receipt Date: 20040928
  Transmission Date: 20050328
  Serious: Yes (Hospitalization)
  Sender: FDA-Public Use
  Company Number: FR-2004-033020

PATIENT
  Age: 81 Year
  Sex: Female
  Weight: 55 kg

DRUGS (4)
  1. SOTALOL(SOTALOL HYDROCHLORIDE) TABLET [Suspect]
     Indication: ATRIAL FIBRILLATION
     Dosage: 40 MG, 2X/DAY, ORAL
     Route: 048
     Dates: end: 20040520
  2. PREVISCAN (FLUINDIONE) [Concomitant]
  3. DIGOXIN [Concomitant]
  4. LASILIX [Concomitant]

REACTIONS (10)
  - ACUTE CORONARY SYNDROME [None]
  - CAROTID ARTERY ATHEROMA [None]
  - CORONARY OSTIAL STENOSIS [None]
  - FACIAL BONES FRACTURE [None]
  - FALL [None]
  - RADIUS FRACTURE [None]
  - SKULL FRACTURE [None]
  - SYNCOPE [None]
  - TORSADE DE POINTES [None]
  - TRAUMATIC FRACTURE [None]
